FAERS Safety Report 14020203 (Version 4)
Quarter: 2017Q4

REPORT INFORMATION
  Report Type: Report from Study
  Country: GB (occurrence: GB)
  Receive Date: 20170928
  Receipt Date: 20171025
  Transmission Date: 20180321
  Serious: Yes (Hospitalization)
  Sender: FDA-Public Use
  Company Number: GB-ROCHE-1995708

PATIENT
  Age: 52 Year
  Sex: Male
  Weight: 93.5 kg

DRUGS (33)
  1. CHLORPHENAMINE [Concomitant]
     Active Substance: CHLORPHENIRAMINE MALEATE
     Indication: PRURITUS
     Dosage: FOR RUSH ON THE BACK AND CHEST?INFUSION REACTION RASH?RASHES (BACK)?RUSH ON THE CHEST AREA?RUSH ON T
     Route: 065
  2. CHLORPHENAMINE [Concomitant]
     Active Substance: CHLORPHENIRAMINE MALEATE
     Indication: RASH
     Route: 065
     Dates: start: 20150604, end: 20150604
  3. DETRUSITOL [Concomitant]
     Active Substance: TOLTERODINE TARTRATE
     Indication: BLADDER DYSFUNCTION
     Route: 048
     Dates: start: 2009
  4. DIOCTYL [Concomitant]
     Active Substance: DOCUSATE SODIUM
     Indication: CONSTIPATION
     Route: 065
     Dates: start: 2009
  5. SERTRALINE [Concomitant]
     Active Substance: SERTRALINE HYDROCHLORIDE
     Indication: DEPRESSION
     Route: 048
     Dates: start: 201704
  6. OMEPRAZOLE. [Concomitant]
     Active Substance: OMEPRAZOLE
     Dosage: ANTACID FOR SERTRALINE
     Route: 065
     Dates: start: 201704, end: 20170912
  7. IBUPROFEN. [Concomitant]
     Active Substance: IBUPROFEN
     Indication: BACK PAIN
     Dosage: AS REQUIRED FOR PAIN?SWITCHED FROM NAPROXEN
     Route: 048
     Dates: start: 20170913
  8. RANITIDINE. [Concomitant]
     Active Substance: RANITIDINE
     Route: 048
     Dates: start: 20170913
  9. OMEPRAZOLE. [Concomitant]
     Active Substance: OMEPRAZOLE
  10. ENOXAPARIN [Concomitant]
     Active Substance: ENOXAPARIN
     Route: 058
  11. METHYLPREDNISOLONE. [Concomitant]
     Active Substance: METHYLPREDNISOLONE
     Indication: PREMEDICATION
     Dosage: 13/MAR/2012, 27/MAR/2012, 29/AUG/2012, 11/SEP/2012, 12/FEB/2013, 26/FEB/2013, 30/JUL/2013, 13/AUG/20
     Route: 065
  12. CHLORPHENAMINE [Concomitant]
     Active Substance: CHLORPHENIRAMINE MALEATE
     Indication: PREMEDICATION
  13. DETRUSITOL [Concomitant]
     Active Substance: TOLTERODINE TARTRATE
     Route: 048
  14. RANITIDINE. [Concomitant]
     Active Substance: RANITIDINE
     Dosage: SWITCHED FROM OMEPRAZOLE SUPPLY
     Route: 048
  15. BACLOFEN. [Concomitant]
     Active Substance: BACLOFEN
     Dosage: BETWEEN 10 - 30 MG EACH NIGHT PLUS 10 -20 MG USUALLY TO MAX TWICE A DAY AS NEEDED FOR SYMPTOMS DURIN
     Route: 048
     Dates: start: 20120823, end: 20120827
  16. CHLORPHENAMINE [Concomitant]
     Active Substance: CHLORPHENIRAMINE MALEATE
     Indication: RASH
  17. BACLOFEN. [Concomitant]
     Active Substance: BACLOFEN
     Indication: MUSCLE SPASMS
     Route: 048
     Dates: start: 20120809, end: 20120822
  18. DESMOPRESSIN [Concomitant]
     Active Substance: DESMOPRESSIN
     Dosage: OWN SUPPLY
     Route: 048
  19. MACROGOL [Concomitant]
     Active Substance: POLYETHYLENE GLYCOLS
     Dosage: 4000 TT
     Route: 048
  20. PARACETAMOL [Concomitant]
     Active Substance: ACETAMINOPHEN
     Indication: BACK PAIN
     Dosage: 13/MAR/2012, 27/MAR/2012, 29/AUG/2012, 11/SEP/2012, 12/FEB/2013, 26/FEB/2013, 30/JUL/2013, 13/AUG/20
     Route: 048
  21. PARACETAMOL [Concomitant]
     Active Substance: ACETAMINOPHEN
     Indication: PREMEDICATION
     Route: 048
     Dates: start: 20170913
  22. NAPROXEN. [Concomitant]
     Active Substance: NAPROXEN
     Indication: BACK PAIN
     Route: 065
     Dates: start: 2011, end: 201401
  23. RANITIDINE. [Concomitant]
     Active Substance: RANITIDINE
     Dosage: ANTACID FOR SERTRALINE
     Route: 048
     Dates: start: 20170913
  24. OCRELIZUMAB. [Suspect]
     Active Substance: OCRELIZUMAB
     Indication: PRIMARY PROGRESSIVE MULTIPLE SCLEROSIS
     Dosage: TWO IV INFUSIONS OF OCRELIZUMAB 300 MG SEPARATED BY 14 DAYS FOR CYCLE 1 AND SINGLE IV INFUSION OF OC
     Route: 042
     Dates: start: 20151118
  25. CHLORPHENAMINE [Concomitant]
     Active Substance: CHLORPHENIRAMINE MALEATE
     Indication: RASH
     Dosage: 13/MAR/2012, 27/MAR/2012, 29/AUG/2012, 11/SEP/2012, 12/FEB/2013, 26/FEB/2013, 30/JUL/2013, 13/AUG/20
     Route: 065
  26. VIAGRA [Concomitant]
     Active Substance: SILDENAFIL CITRATE
     Indication: SEXUAL DYSFUNCTION
     Route: 065
     Dates: start: 20130824
  27. PARACETAMOL [Concomitant]
     Active Substance: ACETAMINOPHEN
     Dosage: SUPPPLY 32 X 500 MG
     Route: 048
  28. NAPROXEN. [Concomitant]
     Active Substance: NAPROXEN
     Route: 065
     Dates: start: 20140408, end: 20170912
  29. OMEGA 3 [Concomitant]
     Active Substance: OMEGA-3 FATTY ACIDS
     Indication: NUTRITIONAL SUPPLEMENTATION
     Route: 065
     Dates: start: 201010
  30. SOLIFENACIN SUCCINATE. [Concomitant]
     Active Substance: SOLIFENACIN SUCCINATE
     Indication: MICTURITION URGENCY
     Dosage: BLADDER URGENCY AND FREQUENCY
     Route: 065
     Dates: start: 20130105
  31. IBUPROFEN. [Concomitant]
     Active Substance: IBUPROFEN
     Route: 065
     Dates: start: 20170913
  32. BACLOFEN. [Concomitant]
     Active Substance: BACLOFEN
     Route: 048
     Dates: start: 20120918
  33. OCRELIZUMAB. [Suspect]
     Active Substance: OCRELIZUMAB
     Indication: PRIMARY PROGRESSIVE MULTIPLE SCLEROSIS
     Dosage: TWO INTRAVENOUS (IV) INFUSIONS OF OCRELIZUMAB SEPARATED BY 14 DAYS IN EACH TREATMENT CYCLE OF 24 WEE
     Route: 042
     Dates: start: 20120313, end: 20151117

REACTIONS (2)
  - Sepsis [Recovered/Resolved]
  - Liver function test abnormal [Recovered/Resolved]

NARRATIVE: CASE EVENT DATE: 20170910
